FAERS Safety Report 5243234-9 (Version None)
Quarter: 2007Q1

REPORT INFORMATION
  Report Type: 
  Country: None (occurrence: None)
  Receive Date: 20070221
  Receipt Date: 20070208
  Transmission Date: 20070707
  Serious: Yes (Death)
  Sender: FDA-Public Use
  Company Number: US-ELI_LILLY_AND_COMPANY-US200611005273

PATIENT
  Age: 40 Year
  Sex: Male
  Weight: 96.598 kg

DRUGS (15)
  1. CYMBALTA [Suspect]
     Indication: DEPRESSION
     Dosage: 60 MG, UNK
  2. CYMBALTA [Suspect]
     Dosage: 90 MG, DAILY (1/D)
  3. KLONOPIN [Concomitant]
     Dosage: 4 MG, DAILY (1/D)
  4. TRAZODIL [Concomitant]
     Dosage: 150 MG, EACH EVENING
  5. SEROQUEL [Concomitant]
     Dosage: 25 MG, UNK
  6. AVINZA [Concomitant]
     Dosage: 60 UNK, 2/D
  7. VISTARIL [Concomitant]
     Dosage: 50 UNK, AS NEEDED
  8. LAMISIL [Concomitant]
     Dosage: 250 UNK, DAILY (1/D)
  9. UROXATRAL [Concomitant]
     Dosage: 50 UNK, EACH EVENING
  10. BACLOFEN [Concomitant]
     Dosage: 10 UNK, AS NEEDED
  11. LORA TAB [Concomitant]
     Dosage: 500 UNK, EVERY 6 HRS
  12. KEFLEX                                  /UNK/ [Concomitant]
     Dosage: UNK MG, UNK
  13. OXYCODONE HCL [Concomitant]
     Dosage: 1 UNK, UNK
  14. KADIAN [Concomitant]
     Dosage: 100 MG, 2/D
     Dates: start: 20061026
  15. WELLBUTRIN XL [Concomitant]
     Dosage: 150 MG, DAILY (1/D)
     Dates: start: 20061002

REACTIONS (3)
  - DEATH [None]
  - LETHARGY [None]
  - SOMNOLENCE [None]
